FAERS Safety Report 4837902-8 (Version None)
Quarter: 2005Q4

REPORT INFORMATION
  Report Type: 
  Country: None (occurrence: None)
  Receive Date: 20051123
  Receipt Date: 20051111
  Transmission Date: 20060501
  Serious: Yes (Other)
  Sender: FDA-Public Use
  Company Number: 2005131254

PATIENT
  Age: 70 Year
  Sex: Male

DRUGS (4)
  1. LIPITOR [Suspect]
     Indication: HYPERLIPIDAEMIA
     Dosage: 10 MG (1 IN 1 D), ORAL
     Route: 048
     Dates: start: 20040522, end: 20040610
  2. ASPIRIN [Concomitant]
  3. HERBESSER R (DILTIAZEM) [Concomitant]
  4. ISOSORBIDE MONONITRATE [Concomitant]

REACTIONS (3)
  - ABNORMAL BEHAVIOUR [None]
  - EPILEPSY [None]
  - PSYCHIATRIC SYMPTOM [None]
